FAERS Safety Report 23276072 (Version 1)
Quarter: 2023Q4

REPORT INFORMATION
  Report Type: Spontaneous
  Country: US (occurrence: US)
  Receive Date: 20231208
  Receipt Date: 20231208
  Transmission Date: 20240109
  Serious: Yes (Other)
  Sender: FDA-Public Use
  Company Number: US-drreddys-SPO/USA/23/0187936

PATIENT
  Age: 77 Year
  Sex: Female

DRUGS (1)
  1. NICOTINE TRANSDERMAL SYSTEM [Suspect]
     Active Substance: NICOTINE
     Indication: Smoking cessation therapy
     Dosage: PATCH 21 MG, STEP1, 14 COUNT, 7TH PATCH
     Dates: start: 20231129

REACTIONS (4)
  - Illness [Unknown]
  - Nicotine dependence [Unknown]
  - Insomnia [Unknown]
  - Headache [Unknown]
